FAERS Safety Report 6649332-7 (Version None)
Quarter: 2010Q1

REPORT INFORMATION
  Report Type: 
  Country: None (occurrence: None)
  Receive Date: 20100324
  Receipt Date: 20100318
  Transmission Date: 20100710
  Serious: Yes (Other)
  Sender: FDA-Public Use
  Company Number: CA-ABBOTT-10P-028-0633177-00

PATIENT
  Age: 39 Year
  Sex: Female

DRUGS (5)
  1. ADALIMUMAB [Suspect]
     Indication: TAKAYASU'S ARTERITIS
  2. INFLIXIMAB [Suspect]
     Indication: TAKAYASU'S ARTERITIS
  3. CORTICOSTEROIDS [Concomitant]
     Indication: DRUG USE FOR UNKNOWN INDICATION
  4. METHOTREXATE [Concomitant]
     Indication: DRUG USE FOR UNKNOWN INDICATION
  5. AZATHIOPRINE [Concomitant]
     Indication: DRUG USE FOR UNKNOWN INDICATION

REACTIONS (2)
  - DRUG EFFECT DECREASED [None]
  - TAKAYASU'S ARTERITIS [None]
